FAERS Safety Report 8590753-3 (Version None)
Quarter: 2012Q3

REPORT INFORMATION
  Report Type: 
  Country: None (occurrence: None)
  Receive Date: 20120813
  Receipt Date: 20120706
  Transmission Date: 20120928
  Serious: Yes (Hospitalization, Other)
  Sender: FDA-Public Use
  Company Number: JP-009507513-1208JPN005217

PATIENT

DRUGS (15)
  1. REBETOL [Suspect]
     Route: 048
     Dates: start: 20120627
  2. TELAVIC [Suspect]
     Route: 048
     Dates: start: 20120613
  3. PEG-INTRON [Suspect]
     Indication: HEPATITIS C
     Dosage: 1.5MCG/KG/WEEK
     Route: 042
     Dates: start: 20120411
  4. REBETOL [Suspect]
     Route: 048
     Dates: start: 20120523
  5. NORVASC [Concomitant]
     Indication: HYPERTENSION
     Dosage: MORNING
     Route: 048
  6. REBETOL [Suspect]
     Indication: HEPATITIS C
     Route: 048
     Dates: start: 20120411, end: 20120522
  7. PEG-INTRON [Suspect]
     Dosage: 1.5MCG/KG/WEEK
     Route: 042
     Dates: start: 20120613
  8. REBETOL [Suspect]
     Route: 048
     Dates: start: 20120530, end: 20120605
  9. TELAVIC [Suspect]
     Route: 048
     Dates: start: 20120530, end: 20120605
  10. TELAVIC [Suspect]
     Indication: HEPATITIS C
     Route: 048
     Dates: start: 20120411
  11. CANDESARTAN CILEXETIL [Concomitant]
     Indication: HYPERTENSION
     Dosage: MORNING,EVENING
     Route: 048
  12. ALLEGRA [Concomitant]
     Indication: RHINITIS ALLERGIC
     Route: 048
  13. PEG-INTRON [Suspect]
     Dosage: 1.5MCG/KG/WEEK
     Route: 042
     Dates: start: 20120530, end: 20120605
  14. REBETOL [Suspect]
     Route: 048
     Dates: start: 20120606, end: 20120626
  15. ROCEPHIN [Suspect]
     Indication: ADVERSE EVENT
     Route: 042
     Dates: start: 20120529, end: 20120604

REACTIONS (2)
  - PYELONEPHRITIS ACUTE [None]
  - HAEMOGLOBIN DECREASED [None]
